FAERS Safety Report 15450836 (Version 1)
Quarter: 2018Q3

REPORT INFORMATION
  Report Type: Spontaneous
  Country: US (occurrence: US)
  Receive Date: 20180926
  Receipt Date: 20180926
  Transmission Date: 20181010
  Serious: Yes (Hospitalization)
  Sender: FDA-Public Use
  Company Number: None

PATIENT
  Age: 45 Year
  Sex: Male

DRUGS (7)
  1. DIARAPAM [Concomitant]
  2. LEVOFLOW [Concomitant]
  3. HUMIRA [Suspect]
     Active Substance: ADALIMUMAB
     Route: 058
     Dates: start: 2015
  4. MARCARPT [Concomitant]
  5. VYVANSE [Concomitant]
     Active Substance: LISDEXAMFETAMINE DIMESYLATE
  6. AMOX [Concomitant]
     Active Substance: UNSPECIFIED INGREDIENT
  7. APAP/COD [Concomitant]

REACTIONS (2)
  - Intestinal ulcer [None]
  - Gastrointestinal infection [None]

NARRATIVE: CASE EVENT DATE: 20180907
